FAERS Safety Report 5604594-X (Version None)
Quarter: 2008Q1

REPORT INFORMATION
  Report Type: 
  Country: None (occurrence: None)
  Receive Date: 20080124
  Receipt Date: 20080124
  Transmission Date: 20080703
  Serious: Yes (Life-Threatening, Hospitalization)
  Sender: FDA-Public Use
  Company Number: None

PATIENT
  Age: 68 Year
  Sex: Female
  Weight: 77.1115 kg

DRUGS (1)
  1. VYTORIN [Suspect]
     Indication: BLOOD CHOLESTEROL INCREASED
     Dosage: ONCE A DAY PO
     Route: 048
     Dates: start: 20070612, end: 20080113

REACTIONS (8)
  - ABASIA [None]
  - BACK INJURY [None]
  - BLOOD PRESSURE DECREASED [None]
  - CHEST PAIN [None]
  - FALL [None]
  - PAIN IN EXTREMITY [None]
  - RENAL FAILURE ACUTE [None]
  - RHABDOMYOLYSIS [None]
